FAERS Safety Report 4343435-8 (Version None)
Quarter: 2004Q2

REPORT INFORMATION
  Report Type: 
  Country: None (occurrence: None)
  Receive Date: 20040419
  Receipt Date: 20040412
  Transmission Date: 20050107
  Serious: Yes (Hospitalization)
  Sender: FDA-Public Use
  Company Number: 2004UW04941

PATIENT
  Age: 68 Year
  Sex: Female
  Weight: 51.2565 kg

DRUGS (12)
  1. IRESSA [Suspect]
     Indication: NON-SMALL CELL LUNG CANCER
     Dosage: 250 MG QD PO
     Route: 048
     Dates: start: 20040214, end: 20040315
  2. HYDROCHLOROTHIAZIDE [Concomitant]
  3. VALPROIC ACID [Concomitant]
  4. LORCET-HD [Concomitant]
  5. ALEVE [Concomitant]
  6. ASPIRIN [Concomitant]
  7. VITAMIN B6 [Concomitant]
  8. VITAMIN B-12 [Concomitant]
  9. THIAMINE HCL [Concomitant]
  10. MULTI-VITAMINS [Concomitant]
  11. ENALAPRIL MALEATE [Concomitant]
  12. BUMEX [Concomitant]

REACTIONS (8)
  - ASTHENIA [None]
  - ATRIAL FIBRILLATION [None]
  - AZOTAEMIA [None]
  - CARDIAC FAILURE [None]
  - CHRONIC OBSTRUCTIVE AIRWAYS DISEASE [None]
  - DEHYDRATION [None]
  - DIARRHOEA [None]
  - HYPOTENSION [None]
